FAERS Safety Report 13761589 (Version 1)
Quarter: 2017Q3

REPORT INFORMATION
  Report Type: Spontaneous
  Country: GB (occurrence: GB)
  Receive Date: 20170717
  Receipt Date: 20170717
  Transmission Date: 20171127
  Serious: Yes (Other)
  Sender: FDA-Public Use
  Company Number: GB-AMGEN-GBRSP2017106327

PATIENT
  Age: 56 Year
  Sex: Female

DRUGS (1)
  1. ENBREL [Suspect]
     Active Substance: ETANERCEPT
     Indication: PRODUCT USED FOR UNKNOWN INDICATION
     Dosage: 50 MG, QWK
     Route: 065

REACTIONS (5)
  - Inflammation of lacrimal passage [Recovered/Resolved]
  - Rheumatoid arthritis [Unknown]
  - Arthralgia [Unknown]
  - Dacryocanaliculitis [Recovered/Resolved]
  - Dacryostenosis acquired [Recovered/Resolved]
